FAERS Safety Report 6419109-6 (Version None)
Quarter: 2009Q4

REPORT INFORMATION
  Report Type: 
  Country: None (occurrence: None)
  Receive Date: 20091028
  Receipt Date: 20091028
  Transmission Date: 20100525
  Serious: Yes (Other)
  Sender: FDA-Public Use
  Company Number: None

PATIENT
  Sex: Male
  Weight: 80.2867 kg

DRUGS (1)
  1. CLOZAPINE [Suspect]
     Indication: SCHIZOPHRENIA
     Dosage: 150MG QD PO
     Route: 048
     Dates: start: 20090820, end: 20090922

REACTIONS (8)
  - BODY TEMPERATURE INCREASED [None]
  - BRAIN NATRIURETIC PEPTIDE [None]
  - BRAIN NATRIURETIC PEPTIDE INCREASED [None]
  - JUGULAR VEIN DISTENSION [None]
  - MYOCARDITIS [None]
  - OEDEMA PERIPHERAL [None]
  - RED BLOOD CELL SEDIMENTATION RATE INCREASED [None]
  - TACHYCARDIA [None]
